FAERS Safety Report 8808617 (Version 1)
Quarter: 2012Q4

REPORT INFORMATION
  Report Type: Spontaneous
  Country: US (occurrence: None)
  Receive Date: 20120920
  Receipt Date: 20120920
  Transmission Date: 20130627
  Serious: Yes (Life-Threatening)
  Sender: FDA-Public Use
  Company Number: None

PATIENT
  Age: 52 Year
  Sex: Female
  Weight: 81.65 kg

DRUGS (1)
  1. LEVAQUIN [Suspect]
     Indication: PNEUMONIA
     Route: 040
     Dates: start: 20110214, end: 20110225

REACTIONS (10)
  - Flushing [None]
  - Pain in extremity [None]
  - Facial pain [None]
  - Chest pain [None]
  - Palpitations [None]
  - Heart rate irregular [None]
  - Eye pain [None]
  - Dry skin [None]
  - Rash [None]
  - Photosensitivity reaction [None]
